FAERS Safety Report 6283736-X (Version None)
Quarter: 2009Q3

REPORT INFORMATION
  Report Type: 
  Country: None (occurrence: None)
  Receive Date: 20090724
  Receipt Date: 20090717
  Transmission Date: 20100115
  Serious: Yes (Other)
  Sender: FDA-Public Use
  Company Number: JP-MERCK-0902USA02738

PATIENT
  Age: 75 Year
  Sex: Male

DRUGS (6)
  1. HYZAAR [Suspect]
     Route: 048
     Dates: start: 20081219, end: 20090116
  2. HYZAAR [Suspect]
     Route: 048
     Dates: start: 20080214, end: 20080101
  3. CONIEL [Concomitant]
     Route: 048
  4. AMARYL [Concomitant]
     Route: 048
  5. SEIBULE [Concomitant]
     Route: 048
  6. ARGAMATE JELLY [Concomitant]
     Route: 048

REACTIONS (2)
  - MELANODERMIA [None]
  - PHOTODERMATOSIS [None]
